FAERS Safety Report 18121073 (Version 1)
Quarter: 2020Q3

REPORT INFORMATION
  Report Type: Spontaneous
  Country: US (occurrence: US)
  Receive Date: 20200806
  Receipt Date: 20200806
  Transmission Date: 20201103
  Serious: Yes (Hospitalization, Other)
  Sender: FDA-Public Use
  Company Number: US-GILEAD-2020-0487509

PATIENT
  Age: 32 Year
  Sex: Male
  Weight: 98.87 kg

DRUGS (32)
  1. STENDRA [Concomitant]
     Active Substance: AVANAFIL
  2. BACTRIM [Concomitant]
     Active Substance: SULFAMETHOXAZOLE\TRIMETHOPRIM
  3. RIFAMPIN. [Concomitant]
     Active Substance: RIFAMPIN
  4. BENZONATATE. [Concomitant]
     Active Substance: BENZONATATE
  5. ECONAZOLE NITRATE. [Concomitant]
     Active Substance: ECONAZOLE NITRATE
  6. IBUPROFEN. [Concomitant]
     Active Substance: IBUPROFEN
  7. PREDNISONE. [Concomitant]
     Active Substance: PREDNISONE
  8. ZOLPIDEM [Concomitant]
     Active Substance: ZOLPIDEM TARTRATE
  9. SULFAMET [Concomitant]
     Active Substance: SULFAMETHOXAZOLE\TRIMETHOPRIM
  10. AMBIEN [Concomitant]
     Active Substance: ZOLPIDEM TARTRATE
  11. PANTOPRAZOLE [Concomitant]
     Active Substance: PANTOPRAZOLE
  12. ALPRAZOLAM. [Concomitant]
     Active Substance: ALPRAZOLAM
  13. CLINDAMYCIN. [Concomitant]
     Active Substance: CLINDAMYCIN
  14. STRIBILD [Suspect]
     Active Substance: COBICISTAT\ELVITEGRAVIR\EMTRICITABINE\TENOFOVIR DISOPROXIL FUMARATE
     Indication: HIV INFECTION
     Dosage: UNK
     Route: 065
     Dates: start: 20141231, end: 20170707
  15. ZOSYN [Concomitant]
     Active Substance: PIPERACILLIN SODIUM\TAZOBACTAM SODIUM
  16. CIPROFLOXACIN. [Concomitant]
     Active Substance: CIPROFLOXACIN
  17. HYOSCYAMINE. [Concomitant]
     Active Substance: HYOSCYAMINE
  18. KETOROLAC [Concomitant]
     Active Substance: KETOROLAC TROMETHAMINE
  19. DOXYCYCLINE HYCLATE. [Concomitant]
     Active Substance: DOXYCYCLINE HYCLATE
  20. VIAGRA [SILDENAFIL] [Concomitant]
  21. STAXYN [Concomitant]
     Active Substance: VARDENAFIL HYDROCHLORIDE
  22. SILDENAFIL. [Concomitant]
     Active Substance: SILDENAFIL
  23. NEXIUM I.V. [Concomitant]
     Active Substance: ESOMEPRAZOLE SODIUM
  24. VECTICAL [Concomitant]
     Active Substance: CALCITRIOL
  25. PROMETHAZINE [Concomitant]
     Active Substance: PROMETHAZINE HYDROCHLORIDE
  26. AZITHROMYCIN ANHYDROUS. [Concomitant]
     Active Substance: AZITHROMYCIN ANHYDROUS
  27. TRAMADOL. [Concomitant]
     Active Substance: TRAMADOL
  28. OMEPRAZOLE. [Concomitant]
     Active Substance: OMEPRAZOLE
  29. AMNESTEEM [Concomitant]
     Active Substance: ISOTRETINOIN
  30. CLARAVIS [Concomitant]
     Active Substance: ISOTRETINOIN
  31. FLUCONAZOLE. [Concomitant]
     Active Substance: FLUCONAZOLE
  32. VALACYCLOVIR HCL [Concomitant]
     Active Substance: VALACYCLOVIR HYDROCHLORIDE

REACTIONS (3)
  - Depression [Not Recovered/Not Resolved]
  - Anxiety [Not Recovered/Not Resolved]
  - Acute kidney injury [Not Recovered/Not Resolved]

NARRATIVE: CASE EVENT DATE: 201710
